FAERS Safety Report 11888610 (Version 1)
Quarter: 2016Q1

REPORT INFORMATION
  Report Type: Spontaneous
  Country: US (occurrence: US)
  Receive Date: 20160105
  Receipt Date: 20160105
  Transmission Date: 20160526
  Serious: Yes (Hospitalization)
  Sender: FDA-Public Use
  Company Number: US-UNITED THERAPEUTICS-UNT-2015-016101

PATIENT
  Age: 61 Year
  Sex: Female
  Weight: 82.99 kg

DRUGS (2)
  1. ADEMPAS [Suspect]
     Active Substance: RIOCIGUAT
     Indication: PRODUCT USED FOR UNKNOWN INDICATION
  2. REMODULIN [Suspect]
     Active Substance: TREPROSTINIL
     Indication: PULMONARY HYPERTENSION
     Dosage: 0.040 ?G/KG, CONTINUING
     Route: 041
     Dates: start: 20150728

REACTIONS (6)
  - Malaise [Unknown]
  - Dyspnoea [Unknown]
  - Fall [Unknown]
  - Mobility decreased [Unknown]
  - Asthenia [Unknown]
  - Cyanosis [Unknown]

NARRATIVE: CASE EVENT DATE: 201512
